FAERS Safety Report 25406812 (Version 1)
Quarter: 2025Q2

REPORT INFORMATION
  Report Type: Other
  Country: US (occurrence: US)
  Receive Date: 20250606
  Receipt Date: 20250606
  Transmission Date: 20250717
  Serious: Yes (Other)
  Sender: INTERCEPT PHARMACEUTICALS
  Company Number: US-INTERCEPT-PM2025001155

PATIENT
  Sex: Female

DRUGS (31)
  1. OCALIVA [Suspect]
     Active Substance: OBETICHOLIC ACID
     Indication: Primary biliary cholangitis
     Dosage: 5 MILLIGRAM, QD
     Route: 048
     Dates: start: 20170719, end: 2017
  2. OCALIVA [Suspect]
     Active Substance: OBETICHOLIC ACID
     Dosage: 10 MILLIGRAM, QD
     Route: 048
     Dates: start: 20171108, end: 202306
  3. OCALIVA [Suspect]
     Active Substance: OBETICHOLIC ACID
     Dosage: 10 MILLIGRAM, QD
     Route: 048
     Dates: start: 202306, end: 202408
  4. OCALIVA [Suspect]
     Active Substance: OBETICHOLIC ACID
     Dosage: 10 MILLIGRAM, QD
     Route: 048
     Dates: start: 202408, end: 202408
  5. OCALIVA [Suspect]
     Active Substance: OBETICHOLIC ACID
     Dosage: 10 MILLIGRAM, QD
     Route: 048
  6. OCALIVA [Suspect]
     Active Substance: OBETICHOLIC ACID
     Dosage: 10 MILLIGRAM, QD
     Route: 048
  7. URSODIOL [Concomitant]
     Active Substance: URSODIOL
     Dates: start: 20170818, end: 20180214
  8. URSODIOL [Concomitant]
     Active Substance: URSODIOL
     Dates: start: 20170621, end: 20180520
  9. ALBUTEROL [Concomitant]
     Active Substance: ALBUTEROL
     Dates: start: 20020402
  10. METFORMIN [Concomitant]
     Active Substance: METFORMIN HYDROCHLORIDE
     Dates: start: 20171021, end: 20180419
  11. METFORMIN [Concomitant]
     Active Substance: METFORMIN HYDROCHLORIDE
     Dates: start: 20180118, end: 20180718
  12. GLIPIZIDE [Concomitant]
     Active Substance: GLIPIZIDE
     Dates: start: 20170814, end: 20180210
  13. GLIPIZIDE [Concomitant]
     Active Substance: GLIPIZIDE
     Dates: start: 20170815, end: 20180211
  14. OMEPRAZOLE [Concomitant]
     Active Substance: OMEPRAZOLE
     Dates: start: 20180108, end: 20180707
  15. ANORO ELLIPTA [Concomitant]
     Active Substance: UMECLIDINIUM BROMIDE\VILANTEROL TRIFENATATE
     Dates: start: 20180122, end: 20180323
  16. ATENOLOL [Concomitant]
     Active Substance: ATENOLOL
  17. AMLODIPINE [Concomitant]
     Active Substance: AMLODIPINE BESYLATE
  18. ASPIRIN [Concomitant]
     Active Substance: ASPIRIN
  19. BACITRACIN\NEOMYCIN\POLYMYXIN B [Concomitant]
     Active Substance: BACITRACIN\NEOMYCIN\POLYMYXIN B
  20. CALCIUM [Concomitant]
     Active Substance: CALCIUM
  21. LEVOFLOXACIN [Concomitant]
     Active Substance: LEVOFLOXACIN
  22. VITAMIN D3 [Concomitant]
     Active Substance: CHOLECALCIFEROL
  23. CYANOCOBALAMIN [Concomitant]
     Active Substance: CYANOCOBALAMIN
  24. IRON [Concomitant]
     Active Substance: IRON
  25. PLAVIX [Concomitant]
     Active Substance: CLOPIDOGREL BISULFATE
  26. SPIRIVA [Concomitant]
     Active Substance: TIOTROPIUM BROMIDE MONOHYDRATE
  27. RANITIDINE [Concomitant]
     Active Substance: RANITIDINE
  28. SYMBICORT [Concomitant]
     Active Substance: BUDESONIDE\FORMOTEROL FUMARATE DIHYDRATE
  29. ATORVASTATIN [Concomitant]
     Active Substance: ATORVASTATIN
  30. KETOROLAC [Concomitant]
     Active Substance: KETOROLAC TROMETHAMINE
  31. TRELEGY ELLIPTA [Concomitant]
     Active Substance: FLUTICASONE FUROATE\UMECLIDINIUM BROMIDE\VILANTEROL TRIFENATATE

REACTIONS (2)
  - Intestinal haemorrhage [Not Recovered/Not Resolved]
  - Unevaluable event [Not Recovered/Not Resolved]
